FAERS Safety Report 8489014 (Version 4)
Quarter: 2012Q4

REPORT INFORMATION
  Report Type: 
  Country: PR (occurrence: US)
  Receive Date: 20120402
  Receipt Date: 20121026
  Transmission Date: 20130627
  Serious: Yes (Hospitalization, Other)
  Sender: FDA-Public Use
  Company Number: PR-009507513-1204USA00035

PATIENT

DRUGS (13)
  1. FOSAMAX [Suspect]
     Indication: OSTEOPOROSIS
     Dosage: 70 mg, qw
     Route: 048
     Dates: start: 199707, end: 20101125
  2. FOSAMAX [Suspect]
     Dosage: 10 UNK, UNK
     Route: 048
     Dates: start: 20000122, end: 20061118
  3. FOSAMAX D [Suspect]
     Indication: OSTEOPOROSIS
     Dosage: 70 mg, UNK
     Route: 048
     Dates: start: 199707, end: 201003
  4. FOSAMAX [Suspect]
     Indication: OSTEOPOROSIS
     Dosage: 70 mg, UNK
     Route: 048
     Dates: start: 199707, end: 201003
  5. VITAMIN D (UNSPECIFIED) [Concomitant]
     Dosage: 800 U, UNK
     Dates: start: 1997
  6. CALCIUM (UNSPECIFIED) [Concomitant]
     Dosage: 1200 U, UNK
     Dates: start: 1997
  7. COUMADIN [Concomitant]
     Indication: ATRIAL FIBRILLATION
     Dates: start: 1991, end: 2012
  8. MK-9359 [Concomitant]
     Indication: ATRIAL FIBRILLATION
     Dates: start: 1991, end: 2012
  9. DAYPRO [Concomitant]
     Indication: HYPERTENSION
  10. METHOTREXATE [Concomitant]
     Indication: RHEUMATOID ARTHRITIS
     Dosage: UNK
  11. TENORMIN [Concomitant]
  12. SYNTHROID [Concomitant]
     Indication: HYPOTHYROIDISM
  13. LEVOTHYROXINE SODIUM [Concomitant]
     Indication: HYPOTHYROIDISM

REACTIONS (27)
  - Open reduction of fracture [Unknown]
  - Cholecystectomy [Unknown]
  - Femur fracture [Recovered/Resolved]
  - Low turnover osteopathy [Unknown]
  - Hypokinesia [Unknown]
  - Depression [Unknown]
  - Anxiety [Unknown]
  - Fear [Unknown]
  - Sleep disorder [Unknown]
  - Impaired healing [Unknown]
  - Bone disorder [Unknown]
  - Syncope [Unknown]
  - Liver function test abnormal [Unknown]
  - Upper respiratory tract infection [Unknown]
  - Foot fracture [Unknown]
  - Hysterectomy [Unknown]
  - Osteoarthritis [Unknown]
  - Arrhythmia [Unknown]
  - Hypercholesterolaemia [Unknown]
  - Diverticulum [Unknown]
  - Muscle spasms [Unknown]
  - Abdominal pain lower [Unknown]
  - Pain in extremity [Unknown]
  - Pain in extremity [Unknown]
  - Intestinal obstruction [Unknown]
  - Explorative laparotomy [Unknown]
  - Fall [Unknown]
